FAERS Safety Report 9792171 (Version 2)
Quarter: 2014Q1

REPORT INFORMATION
  Report Type: Spontaneous
  Country: NL (occurrence: NL)
  Receive Date: 20140102
  Receipt Date: 20140102
  Transmission Date: 20141002
  Serious: Yes (Hospitalization, Other)
  Sender: FDA-Public Use
  Company Number: NL-SA-2013SA123438

PATIENT
  Age: 43 Year
  Sex: Female

DRUGS (3)
  1. PETHIDINE HYDROCHLORIDE [Suspect]
     Indication: PAIN
     Dosage: VIA PORT-A-CATH.?DOSE RANGE: 300 MG TO 1200 MG
     Route: 042
     Dates: start: 2004, end: 2011
  2. PETHIDINE HYDROCHLORIDE [Suspect]
     Indication: PAIN
     Route: 065
     Dates: start: 2000, end: 2003
  3. METHADONE [Suspect]
     Indication: DRUG WITHDRAWAL MAINTENANCE THERAPY
     Route: 048

REACTIONS (5)
  - Intracardiac thrombus [Unknown]
  - Drug dependence [Recovered/Resolved]
  - Drug withdrawal syndrome [Unknown]
  - Nausea [Unknown]
  - Vomiting [Unknown]
